FAERS Safety Report 4968154-6 (Version None)
Quarter: 2006Q1

REPORT INFORMATION
  Report Type: 
  Country: None (occurrence: None)
  Receive Date: 20060201
  Receipt Date: 20051013
  Transmission Date: 20060701
  Serious: No
  Sender: FDA-Public Use
  Company Number: 2005PV002999

PATIENT
  Age: 57 Year
  Sex: Female
  Weight: 87.9978 kg

DRUGS (15)
  1. BYETTA [Suspect]
     Indication: DIABETES MELLITUS NON-INSULIN-DEPENDENT
     Dosage: SEE IMAGE, SC
     Route: 058
     Dates: start: 20050916, end: 20050101
  2. BYETTA [Suspect]
     Indication: DIABETES MELLITUS NON-INSULIN-DEPENDENT
     Dosage: SEE IMAGE, SC
     Route: 058
     Dates: start: 20050808, end: 20050916
  3. BYETTA [Suspect]
     Indication: DIABETES MELLITUS NON-INSULIN-DEPENDENT
     Dosage: SEE IMAGE, SC
     Route: 058
     Dates: start: 20051012, end: 20051012
  4. BYETTA [Suspect]
     Indication: DIABETES MELLITUS NON-INSULIN-DEPENDENT
     Dosage: SEE IMAGE, SC
     Route: 058
     Dates: start: 20050101
  5. NAPROSYN [Suspect]
     Indication: PAIN
     Dosage: 500 MG; PRN
     Dates: start: 20050804
  6. PAXIL [Concomitant]
  7. XANAX [Concomitant]
  8. NEURONTIN [Concomitant]
  9. TOPROL-XL [Concomitant]
  10. LIPITOR [Concomitant]
  11. LOTREL [Concomitant]
  12. AMARYL [Concomitant]
  13. GLUCOPHAGE [Concomitant]
  14. ASPIRIN [Concomitant]
  15. ANESTHESIA [Concomitant]

REACTIONS (8)
  - ABDOMINAL PAIN UPPER [None]
  - AGITATION [None]
  - DELAYED RECOVERY FROM ANAESTHESIA [None]
  - GASTRIC ULCER [None]
  - MUSCLE SPASMS [None]
  - PANIC ATTACK [None]
  - SUICIDAL IDEATION [None]
  - WEIGHT DECREASED [None]
